FAERS Safety Report 10796028 (Version 1)
Quarter: 2015Q1

REPORT INFORMATION
  Report Type: Spontaneous
  Country: GB (occurrence: GB)
  Receive Date: 20150216
  Receipt Date: 20150216
  Transmission Date: 20150721
  Serious: Yes (Hospitalization, Other)
  Sender: FDA-Public Use
  Company Number: GB-ACCORD-028538

PATIENT
  Sex: Female

DRUGS (2)
  1. ARIPIPRAZOLE. [Suspect]
     Active Substance: ARIPIPRAZOLE
     Indication: SCHIZOPHRENIA
     Dosage: PATIENT TOOK 10 MG DAILY FROM 11-JUL-2014 TO 16-JUL-2014.?1 DF= 10-15 MG /DAY
     Route: 048
     Dates: start: 20140626, end: 20140716
  2. QUETIAPINE [Suspect]
     Active Substance: QUETIAPINE
     Indication: PRODUCT USED FOR UNKNOWN INDICATION
     Route: 065

REACTIONS (10)
  - Anxiety [Unknown]
  - Haemorrhage [Unknown]
  - Drug withdrawal syndrome [Unknown]
  - Depressed mood [Unknown]
  - Suspiciousness [Unknown]
  - Meningitis [Unknown]
  - Neck pain [Unknown]
  - Social phobia [Unknown]
  - Musculoskeletal stiffness [Unknown]
  - Migraine [Unknown]

NARRATIVE: CASE EVENT DATE: 201407
